FAERS Safety Report 9471816 (Version 1)
Quarter: 2013Q3

REPORT INFORMATION
  Report Type: Spontaneous
  Country: US (occurrence: None)
  Receive Date: 20130819
  Receipt Date: 20130819
  Transmission Date: 20140515
  Serious: Yes (Other)
  Sender: FDA-Public Use
  Company Number: 2013P1017585

PATIENT
  Age: 13 Year
  Sex: Male
  Weight: 39.46 kg

DRUGS (1)
  1. OXTELLAR XR [Suspect]
     Indication: EPILEPSY
     Route: 048
     Dates: start: 20130726, end: 20130806

REACTIONS (1)
  - Partial seizures [None]
